FAERS Safety Report 23151178 (Version 1)
Quarter: 2023Q4

REPORT INFORMATION
  Report Type: Spontaneous
  Country: PH (occurrence: PH)
  Receive Date: 20231106
  Receipt Date: 20231106
  Transmission Date: 20240110
  Serious: No
  Sender: FDA-Public Use
  Company Number: PH-SCALL-2023-047816

PATIENT
  Age: 76 Year
  Sex: Male
  Weight: 74.83 kg

DRUGS (1)
  1. DUTASTERIDE [Suspect]
     Active Substance: DUTASTERIDE
     Indication: Prostatic disorder
     Dosage: 1 DF, QD
     Route: 048
     Dates: start: 20220915, end: 20221115

REACTIONS (1)
  - Prostatic specific antigen increased [Unknown]
